FAERS Safety Report 18986803 (Version 1)
Quarter: 2021Q1

REPORT INFORMATION
  Report Type: Spontaneous
  Country: US (occurrence: US)
  Receive Date: 20210309
  Receipt Date: 20210309
  Transmission Date: 20210420
  Serious: Yes (Death)
  Sender: FDA-Public Use
  Company Number: None

PATIENT
  Age: 72 Year
  Sex: Male
  Weight: 70.2 kg

DRUGS (11)
  1. METOPROLOL SUCCINATE. [Concomitant]
     Active Substance: METOPROLOL SUCCINATE
  2. ATORVASTATIN 10MG [Concomitant]
     Active Substance: ATORVASTATIN
  3. APIXABAN 2.5MG [Concomitant]
     Active Substance: APIXABAN
  4. DEXAMETHASONE 6MG [Concomitant]
  5. TRELEGY ELLIPTA [Concomitant]
     Active Substance: FLUTICASONE FUROATE\UMECLIDINIUM BROMIDE\VILANTEROL TRIFENATATE
  6. CLOPIDOGREL [Concomitant]
     Active Substance: CLOPIDOGREL BISULFATE
  7. MULTVITAMIN, RENAL [Concomitant]
  8. REMDESIVIR. [Suspect]
     Active Substance: REMDESIVIR
     Indication: COVID-19
     Dosage: ?          OTHER FREQUENCY:GIVEN ONCE;?
     Route: 042
     Dates: start: 20210223, end: 20210223
  9. DARBOPOETIN ALFA 40MCG [Concomitant]
  10. FAMOTIDINE 20MG [Concomitant]
     Active Substance: FAMOTIDINE
  11. FUROSEMIDE. [Concomitant]
     Active Substance: FUROSEMIDE

REACTIONS (1)
  - Cardio-respiratory arrest [None]
